FAERS Safety Report 9224986 (Version 1)
Quarter: 2013Q2

REPORT INFORMATION
  Report Type: Spontaneous
  Country: GB (occurrence: GB)
  Receive Date: 20130411
  Receipt Date: 20130411
  Transmission Date: 20140414
  Serious: Yes (Disabling)
  Sender: FDA-Public Use
  Company Number: GB-MYLANLABS-2013S1007360

PATIENT
  Age: 39 Year
  Sex: Female
  Weight: 69.85 kg

DRUGS (3)
  1. CITALOPRAM [Suspect]
     Indication: ANXIETY
     Route: 048
     Dates: start: 20130131
  2. CITALOPRAM [Suspect]
     Indication: DEPRESSION
     Route: 048
     Dates: start: 20130131
  3. IBUPROFEN [Suspect]
     Indication: OROPHARYNGEAL PAIN

REACTIONS (4)
  - Oropharyngeal pain [Recovered/Resolved]
  - Vaginal haemorrhage [Recovered/Resolved]
  - Malaise [Recovered/Resolved]
  - Haemoglobin decreased [Unknown]
